FAERS Safety Report 13873375 (Version 1)
Quarter: 2017Q3

REPORT INFORMATION
  Report Type: Spontaneous
  Country: US (occurrence: US)
  Receive Date: 20170816
  Receipt Date: 20170816
  Transmission Date: 20171127
  Serious: No
  Sender: FDA-Public Use
  Company Number: US-MALLINCKRODT-T201606330

PATIENT
  Age: 54 Year
  Sex: Female

DRUGS (7)
  1. OXYCODONE [Suspect]
     Active Substance: OXYCODONE
     Indication: NECK PAIN
  2. OXYCODONE [Suspect]
     Active Substance: OXYCODONE
     Indication: RADICULOPATHY
  3. OXYCODONE [Suspect]
     Active Substance: OXYCODONE
     Indication: NERVE INJURY
  4. OXYCODONE [Suspect]
     Active Substance: OXYCODONE
     Indication: BACK PAIN
     Dosage: 1-2 TABLETS Q4-6HR, MAX OF 7 TABLETS PER DAY
     Route: 048
     Dates: start: 201506
  5. OXYCODONE [Suspect]
     Active Substance: OXYCODONE
     Indication: ARTHRALGIA
  6. DILAUDID [Concomitant]
     Active Substance: HYDROMORPHONE HYDROCHLORIDE
     Dosage: UNK
     Dates: start: 201609, end: 201609
  7. OXYCODONE [Suspect]
     Active Substance: OXYCODONE
     Indication: SCAR

REACTIONS (2)
  - Drug screen positive [Unknown]
  - Product impurity [Unknown]

NARRATIVE: CASE EVENT DATE: 20161012
